FAERS Safety Report 21973861 (Version 1)
Quarter: 2023Q1

REPORT INFORMATION
  Report Type: Report from Study
  Country: ES (occurrence: ES)
  Receive Date: 20230209
  Receipt Date: 20230209
  Transmission Date: 20230417
  Serious: Yes (Hospitalization)
  Sender: FDA-Public Use
  Company Number: ES-GLAXOSMITHKLINE-ESCH2022GSK016119

PATIENT

DRUGS (34)
  1. POMALIDOMIDE [Suspect]
     Active Substance: POMALIDOMIDE
     Indication: Plasma cell myeloma
     Dosage: 4 MG, 1-21 DAYSOF 28 DAYS CYCLE
     Route: 048
     Dates: start: 20220128, end: 20220427
  2. BORTEZOMIB [Suspect]
     Active Substance: BORTEZOMIB
     Indication: Plasma cell myeloma
     Dosage: 1.3 MG/M2, 1, 4 ,8 AND 11  OF 21 DAYS CYCLE
     Route: 058
     Dates: start: 20220128
  3. DEXAMETHASONE [Suspect]
     Active Substance: DEXAMETHASONE
     Indication: Plasma cell myeloma
     Dosage: 40 MG, DAYS 1, 8, 15 AND 22 OF DAY 28 CYCLE.
     Route: 048
     Dates: start: 20220128, end: 20220426
  4. ZOLEDRONIC ACID [Suspect]
     Active Substance: ZOLEDRONIC ACID
     Indication: Bone lesion
     Dosage: 3.5 MG, SINGLE
     Route: 042
     Dates: start: 20220422, end: 20220422
  5. LISINOPRIL [Concomitant]
     Active Substance: LISINOPRIL
     Indication: Hypertension
     Dosage: 20 MG, QD
     Route: 048
     Dates: start: 20210211, end: 20220210
  6. AMLODIPINE [Concomitant]
     Active Substance: AMLODIPINE BESYLATE
     Indication: Hypertension
     Dosage: 10 MG, QD
     Route: 048
     Dates: start: 20210305, end: 20220210
  7. SERTRALINE [Concomitant]
     Active Substance: SERTRALINE HYDROCHLORIDE
     Indication: Mixed anxiety and depressive disorder
     Dosage: 100 MG, QD
     Route: 048
     Dates: start: 202103
  8. ALPRAZOLAM [Concomitant]
     Active Substance: ALPRAZOLAM
     Indication: Mixed anxiety and depressive disorder
     Dosage: 0.5 MG, QID
     Route: 048
     Dates: start: 2022
  9. ACETAMINOPHEN [Concomitant]
     Active Substance: ACETAMINOPHEN
     Indication: Arthralgia
     Dosage: 1 G, PRN
     Route: 048
     Dates: start: 2022
  10. CALCIFEDIOL [Concomitant]
     Active Substance: CALCIFEDIOL
     Indication: Osteoporosis
     Dosage: 0.266 UG, QM
     Route: 048
     Dates: start: 2022
  11. CALCIUM [Concomitant]
     Active Substance: CALCIUM
     Indication: Osteoporosis
     Dosage: 1000 MG, QD
     Route: 048
     Dates: start: 2022
  12. VITAMIN D [Concomitant]
     Active Substance: VITAMIN D NOS
     Indication: Osteoporosis
     Dosage: 880 MG
     Route: 048
     Dates: start: 2022
  13. ASPIRIN [Concomitant]
     Active Substance: ASPIRIN
     Indication: Thrombosis prophylaxis
     Dosage: 100 MG, QD
     Route: 048
     Dates: start: 2021, end: 20220126
  14. OMEPRAZOLE [Concomitant]
     Active Substance: OMEPRAZOLE
     Indication: Prophylaxis against gastrointestinal ulcer
     Dosage: 20 MG, QD
     Route: 048
     Dates: start: 2020
  15. ENOXAPARIN [Concomitant]
     Active Substance: ENOXAPARIN
     Indication: Thrombosis prophylaxis
     Dosage: 40 MG, QD
     Route: 048
     Dates: start: 20220127
  16. ACYCLOVIR [Concomitant]
     Active Substance: ACYCLOVIR
     Indication: Infection prophylaxis
     Dosage: 400 MG, QD
     Route: 048
     Dates: start: 20220127
  17. LAMIVUDINE [Concomitant]
     Active Substance: LAMIVUDINE
     Indication: Prophylaxis
     Dosage: 100 MG, QD
     Route: 048
     Dates: start: 20210127
  18. FOLIC ACID [Concomitant]
     Active Substance: FOLIC ACID
     Indication: Prophylaxis
     Dosage: 5 MG, QD
     Route: 048
     Dates: start: 2022
  19. SIMVASTATIN [Concomitant]
     Active Substance: SIMVASTATIN
     Indication: Dyslipidaemia
     Dosage: 20 MG, QD
     Route: 048
     Dates: start: 202111
  20. FENTANYL [Concomitant]
     Active Substance: FENTANYL
     Indication: Arthralgia
     Dosage: 12.5 UG,
     Route: 058
     Dates: start: 20220207, end: 20220217
  21. FENTANYL [Concomitant]
     Active Substance: FENTANYL
     Dosage: 25 UG, TID
     Route: 058
     Dates: start: 20220218, end: 20220227
  22. FENTANYL [Concomitant]
     Active Substance: FENTANYL
     Dosage: 37.5 UG, TID
     Route: 058
     Dates: start: 20220228
  23. FENTANYL [Concomitant]
     Active Substance: FENTANYL
     Dosage: 100 UG, TID
     Route: 058
     Dates: start: 20220421
  24. HYDROCHLOROTHIAZIDE [Concomitant]
     Active Substance: HYDROCHLOROTHIAZIDE
     Indication: Oedema peripheral
     Dosage: 25 MG, QD
     Route: 048
     Dates: start: 20220228
  25. BIO K [Concomitant]
     Indication: Hypokalaemia
     Dosage: 1 DF
     Dates: start: 20220310
  26. ACETAMINOPHEN\TRAMADOL [Concomitant]
     Active Substance: ACETAMINOPHEN\TRAMADOL
     Indication: Back pain
     Dosage: 37.5/325 MG, TID
     Route: 048
     Dates: start: 20220421
  27. MASTICAL D [Concomitant]
     Indication: Hypokalaemia
     Dosage: 500 MG, TID
     Route: 048
     Dates: start: 20220428
  28. FEBUXOSTAT [Concomitant]
     Active Substance: FEBUXOSTAT
     Indication: Hyperuricaemia
     Dosage: 80 MG, QD
     Route: 048
     Dates: start: 20220428
  29. MAGNESIUM [Concomitant]
     Active Substance: MAGNESIUM
     Indication: Hyperuricaemia
     Dosage: 53 MG, QD
     Route: 048
     Dates: start: 20220428
  30. IBUPROFEN [Suspect]
     Active Substance: IBUPROFEN
     Indication: Arthralgia
     Dosage: 600 MG AS NEEDED
     Route: 048
  31. IBUPROFEN [Suspect]
     Active Substance: IBUPROFEN
     Indication: Back pain
     Dosage: 600 MG AS NEEDED
     Route: 048
     Dates: start: 2022
  32. DEXAMETHASONE [Suspect]
     Active Substance: DEXAMETHASONE
     Indication: Plasma cell myeloma
     Dosage: 40 MG (1,8,15, 22 OF 28 DAY CYCLE)
     Route: 048
     Dates: start: 20220128, end: 20220426
  33. BORTEZOMIB [Suspect]
     Active Substance: BORTEZOMIB
     Indication: Plasma cell myeloma
     Dosage: 1.3 MG/M2 (1,4,8,11 OF 21 DAY CYCLE)
     Route: 058
  34. ASCORBIC ACID\POTASSIUM BICARBONATE [Concomitant]
     Active Substance: ASCORBIC ACID\POTASSIUM BICARBONATE
     Indication: Hypokalaemia
     Dosage: 1 DF
     Dates: start: 20220310

REACTIONS (1)
  - Acute kidney injury [Recovered/Resolved with Sequelae]

NARRATIVE: CASE EVENT DATE: 20220425
